FAERS Safety Report 20592018 (Version 1)
Quarter: 2022Q1

REPORT INFORMATION
  Report Type: Spontaneous
  Country: CN (occurrence: CN)
  Receive Date: 20220314
  Receipt Date: 20220314
  Transmission Date: 20220423
  Serious: Yes (Other)
  Sender: FDA-Public Use
  Company Number: CN-PFIZER INC-202200359219

PATIENT
  Age: 12 Month
  Sex: Female
  Weight: 10 kg

DRUGS (1)
  1. ZITHROMAX [Suspect]
     Active Substance: AZITHROMYCIN DIHYDRATE
     Indication: Upper respiratory tract infection
     Dosage: 1 DF, 1X/DAY
     Route: 048
     Dates: start: 20220223, end: 20220223

REACTIONS (1)
  - Infantile vomiting [Recovering/Resolving]

NARRATIVE: CASE EVENT DATE: 20220223
